FAERS Safety Report 7356607-5 (Version None)
Quarter: 2011Q1

REPORT INFORMATION
  Report Type: 
  Country: None (occurrence: None)
  Receive Date: 20110316
  Receipt Date: 20110303
  Transmission Date: 20110831
  Serious: Yes (Other)
  Sender: FDA-Public Use
  Company Number: PHHY2011US18947

PATIENT
  Age: 50 Year
  Sex: Male

DRUGS (8)
  1. DEXAMETHASONE [Suspect]
     Indication: T-CELL TYPE ACUTE LEUKAEMIA
  2. CYCLOPHOSPHAMIDE [Suspect]
     Indication: T-CELL TYPE ACUTE LEUKAEMIA
  3. FLUCONAZOLE [Concomitant]
     Indication: ANTIFUNGAL TREATMENT
  4. ACYCLOVIR [Concomitant]
     Indication: ANTIVIRAL TREATMENT
  5. VALGANCICLOVIR [Concomitant]
     Route: 048
  6. VINCRISTINE [Suspect]
     Indication: T-CELL TYPE ACUTE LEUKAEMIA
  7. CIPROFLOXACIN [Concomitant]
     Indication: ANTIBIOTIC THERAPY
  8. DOXORUBICIN [Suspect]
     Indication: T-CELL TYPE ACUTE LEUKAEMIA

REACTIONS (7)
  - CYTOMEGALOVIRUS CHORIORETINITIS [None]
  - RETINAL HAEMORRHAGE [None]
  - NECROTISING RETINITIS [None]
  - VISION BLURRED [None]
  - VISUAL FIELD DEFECT [None]
  - VISUAL IMPAIRMENT [None]
  - TOXICITY TO VARIOUS AGENTS [None]
